FAERS Safety Report 4428393-X (Version None)
Quarter: 2004Q3

REPORT INFORMATION
  Report Type: 
  Country: None (occurrence: None)
  Receive Date: 20040813
  Receipt Date: 20040730
  Transmission Date: 20050211
  Serious: Yes (Hospitalization)
  Sender: FDA-Public Use
  Company Number: CERZ-10627

PATIENT
  Age: 6 Year
  Sex: Female
  Weight: 12.8 kg

DRUGS (12)
  1. CEREZYME [Suspect]
     Indication: GAUCHER'S DISEASE
     Dosage: 600 UNITS Q2WKS IV
     Route: 042
     Dates: start: 19990527
  2. CLONAZEPAM [Concomitant]
  3. ZONIASMIDE [Concomitant]
  4. DANTROLENE SODIUM [Concomitant]
  5. DIAZEPAM [Concomitant]
  6. TRICLOFOS SODIUM [Concomitant]
  7. CARBOCYSTEINE [Concomitant]
  8. AMBROXOL HYDROCHLORIDE [Concomitant]
  9. SODIUM/POTASSIUM/MAGNESIUM [Concomitant]
  10. MOSAPRIDE [Concomitant]
  11. FAMOTIDINE [Concomitant]
  12. PEMIROLAST [Concomitant]

REACTIONS (7)
  - ANAL FISSURE [None]
  - BLOOD AMYLASE INCREASED [None]
  - CONDITION AGGRAVATED [None]
  - EYE DISCHARGE [None]
  - INSOMNIA [None]
  - REFLUX OESOPHAGITIS [None]
  - URINARY RETENTION [None]
